FAERS Safety Report 10433633 (Version 2)
Quarter: 2014Q3

REPORT INFORMATION
  Report Type: Spontaneous
  Country: US (occurrence: US)
  Receive Date: 20140905
  Receipt Date: 20140905
  Transmission Date: 20150326
  Serious: Yes (Hospitalization, Other)
  Sender: FDA-Public Use
  Company Number: PHEH2013US024475

PATIENT
  Sex: Female

DRUGS (1)
  1. TEKTURNA [Suspect]
     Active Substance: ALISKIREN HEMIFUMARATE
     Indication: HYPERTENSION
     Dosage: 150-300 MG/QD
     Dates: start: 200912

REACTIONS (24)
  - Hyponatraemia [Not Recovered/Not Resolved]
  - Disability [Unknown]
  - Chronic obstructive pulmonary disease [Unknown]
  - Breath sounds abnormal [Unknown]
  - Hypotension [Unknown]
  - Renal failure acute [Unknown]
  - Dyspnoea [Unknown]
  - Anhedonia [Unknown]
  - Blood potassium increased [Unknown]
  - Obesity [Unknown]
  - Constipation [Unknown]
  - Hypoxia [Unknown]
  - Pneumonia [Unknown]
  - Anxiety [Unknown]
  - Hypothyroidism [Unknown]
  - Headache [Unknown]
  - Renal tubular necrosis [Unknown]
  - Renal failure chronic [Unknown]
  - Injury [Unknown]
  - Pain [Unknown]
  - Asthma [Unknown]
  - Bipolar disorder [Unknown]
  - Lymphoedema [Unknown]
  - Gastrooesophageal reflux disease [Unknown]

NARRATIVE: CASE EVENT DATE: 2011
